FAERS Safety Report 18880710 (Version 2)
Quarter: 2021Q1

REPORT INFORMATION
  Report Type: Spontaneous
  Country: US (occurrence: US)
  Receive Date: 20210211
  Receipt Date: 20210302
  Transmission Date: 20210420
  Serious: No
  Sender: FDA-Public Use
  Company Number: US-PFIZER INC-2021122303

PATIENT
  Age: 80 Year
  Sex: Female

DRUGS (2)
  1. SUTENT [Suspect]
     Active Substance: SUNITINIB MALATE
     Indication: GASTROINTESTINAL STROMAL TUMOUR
  2. SUTENT [Suspect]
     Active Substance: SUNITINIB MALATE
     Indication: CHEMOTHERAPY
     Dosage: 25 MG, CYCLIC (TAKE 1 CAP ORALLY ONCE A DAY FOR 21 DAYS, THEN TAKE 7 DAYS OFF (IE 21 DAYS ON AND 7 D
     Route: 048

REACTIONS (3)
  - Product use issue [Unknown]
  - Illness [Unknown]
  - Off label use [Unknown]
